FAERS Safety Report 6668897-2 (Version None)
Quarter: 2010Q2

REPORT INFORMATION
  Report Type: 
  Country: None (occurrence: None)
  Receive Date: 20100406
  Receipt Date: 20100330
  Transmission Date: 20101027
  Serious: Yes (Hospitalization)
  Sender: FDA-Public Use
  Company Number: JP-ROCHE-694129

PATIENT
  Sex: Female
  Weight: 45.5 kg

DRUGS (6)
  1. COPEGUS [Suspect]
     Dosage: ACTION TAKEN: DISCONTINUED
     Route: 048
     Dates: start: 20090909, end: 20100324
  2. PEGASYS [Suspect]
     Route: 058
     Dates: start: 20090909, end: 20100118
  3. PEGASYS [Suspect]
     Dosage: ACTION TAKEN: DOSE DECREASED
     Route: 058
     Dates: start: 20100125, end: 20100125
  4. PEGASYS [Suspect]
     Dosage: ACTION TAKEN: DISCONTINUED
     Route: 058
     Dates: start: 20100201, end: 20100324
  5. FLUVASTATIN [Concomitant]
     Route: 048
     Dates: start: 20090519
  6. LENDORMIN [Concomitant]
     Dosage: NOTE: AMOUNT OF ONE TIME OF SINGLE USE: 0.125-0.25MG
     Route: 048

REACTIONS (13)
  - ARTHRALGIA [None]
  - CONTUSION [None]
  - DECREASED APPETITE [None]
  - ECZEMA ASTEATOTIC [None]
  - HEADACHE [None]
  - HYPOAESTHESIA [None]
  - INSOMNIA [None]
  - LOSS OF CONSCIOUSNESS [None]
  - MALAISE [None]
  - NEUTROPHIL COUNT DECREASED [None]
  - PRURITUS [None]
  - PYREXIA [None]
  - VERTIGO POSITIONAL [None]
